FAERS Safety Report 6038990-6 (Version None)
Quarter: 2009Q1

REPORT INFORMATION
  Report Type: 
  Country: None (occurrence: None)
  Receive Date: 20090115
  Receipt Date: 20090105
  Transmission Date: 20090719
  Serious: Yes (Death)
  Sender: FDA-Public Use
  Company Number: US-MERCK-0901USA00930

PATIENT
  Age: 48 Year
  Sex: Female

DRUGS (10)
  1. HYDRODIURIL [Suspect]
     Route: 048
  2. BUPROPION HYDROCHLORIDE [Suspect]
     Route: 048
  3. VENLAFAXINE HYDROCHLORIDE [Suspect]
     Route: 048
  4. ACETAMINOPHEN AND HYDROCODONE BITARTRATE [Suspect]
     Route: 048
  5. TRAMADOL HYDROCHLORIDE [Suspect]
     Route: 048
  6. COCAINE [Suspect]
     Route: 048
  7. IRBESARTAN [Suspect]
     Route: 048
  8. ATROPINE SULFATE AND DIPHENOXYLATE HYDROCHLORIDE [Suspect]
     Route: 048
  9. OLANZAPINE [Suspect]
     Route: 048
  10. QUINAPRIL HYDROCHLORIDE [Suspect]
     Route: 048

REACTIONS (2)
  - COMPLETED SUICIDE [None]
  - OVERDOSE [None]
